FAERS Safety Report 9282328 (Version 1)
Quarter: 2013Q2

REPORT INFORMATION
  Report Type: Spontaneous
  Country: US (occurrence: None)
  Receive Date: 20130509
  Receipt Date: 20130509
  Transmission Date: 20140414
  Serious: Yes (Other)
  Sender: FDA-Public Use
  Company Number: None

PATIENT
  Sex: Female
  Weight: 149.69 kg

DRUGS (1)
  1. MINOXIDIL [Suspect]
     Indication: HYPERTENSION
     Dosage: 1/2 PILL 5 MG 2X DAY
     Dates: start: 201208, end: 201301

REACTIONS (13)
  - Swelling face [None]
  - Local swelling [None]
  - Local swelling [None]
  - Nausea [None]
  - Vomiting [None]
  - Abdominal distension [None]
  - Dizziness [None]
  - Chest pain [None]
  - Musculoskeletal pain [None]
  - Pain in extremity [None]
  - Pain in jaw [None]
  - Rash [None]
  - Hair growth abnormal [None]
